FAERS Safety Report 9173257 (Version 1)
Quarter: 2013Q1

REPORT INFORMATION
  Report Type: Spontaneous
  Country: CA (occurrence: None)
  Receive Date: 20130125
  Receipt Date: 20130125
  Transmission Date: 20140127
  Serious: Yes (Other)
  Sender: FDA-Public Use
  Company Number: AECAN201300026

PATIENT
  Age: 81 Year
  Sex: Male
  Weight: 104.33 kg

DRUGS (7)
  1. IGIVNEX [Suspect]
     Route: 042
     Dates: start: 20121229, end: 20130103
  2. GAMUNEX [Suspect]
     Route: 042
     Dates: start: 20121229, end: 20130103
  3. PANTOLOC [Concomitant]
  4. MORPHINE [Concomitant]
  5. RANITIDINE [Concomitant]
  6. DEXAMETHASONE [Concomitant]
  7. RABEPRAZOLE SODIUM [Concomitant]

REACTIONS (2)
  - Renal impairment [None]
  - Haemolytic anaemia [None]
